FAERS Safety Report 15919116 (Version 1)
Quarter: 2019Q1

REPORT INFORMATION
  Report Type: Spontaneous
  Country: US (occurrence: US)
  Receive Date: 20190205
  Receipt Date: 20190205
  Transmission Date: 20190417
  Serious: Yes (Hospitalization)
  Sender: FDA-Public Use
  Company Number: US-CELGENEUS-USA-20190109970

PATIENT
  Age: 67 Year
  Sex: Female

DRUGS (1)
  1. REVLIMID [Suspect]
     Active Substance: LENALIDOMIDE
     Indication: NON-HODGKIN^S LYMPHOMA
     Dosage: 15 MILLIGRAM
     Route: 048
     Dates: start: 201901

REACTIONS (4)
  - Product dose omission [Recovered/Resolved]
  - Oxygen saturation decreased [Recovered/Resolved]
  - Fluid retention [Recovering/Resolving]
  - Heart rate increased [Recovered/Resolved]

NARRATIVE: CASE EVENT DATE: 20190128
